FAERS Safety Report 5479480-9 (Version None)
Quarter: 2007Q4

REPORT INFORMATION
  Report Type: 
  Country: None (occurrence: None)
  Receive Date: 20071008
  Receipt Date: 20071003
  Transmission Date: 20080405
  Serious: Yes (Other)
  Sender: FDA-Public Use
  Company Number: US-ASTRAZENECA-2007UW23046

PATIENT
  Age: 69 Year
  Weight: 68.9 kg

DRUGS (6)
  1. NEXIUM [Suspect]
     Indication: GASTROOESOPHAGEAL REFLUX DISEASE
     Route: 048
     Dates: start: 20070927
  2. LEVOTHYROXINE SODIUM [Concomitant]
  3. WARFARIN SODIUM [Concomitant]
  4. SOTALOL HYDROCHLORIDE [Concomitant]
  5. BENAZEPRIL HYDROCHLORIDE [Concomitant]
  6. CALCIUM [Concomitant]

REACTIONS (6)
  - ABDOMINAL PAIN UPPER [None]
  - ATRIAL FIBRILLATION [None]
  - BLOOD PRESSURE INCREASED [None]
  - CHEST PAIN [None]
  - HEADACHE [None]
  - NAUSEA [None]
